FAERS Safety Report 5357434-0 (Version None)
Quarter: 2007Q2

REPORT INFORMATION
  Report Type: 
  Country: None (occurrence: None)
  Receive Date: 20070530
  Receipt Date: 20061218
  Transmission Date: 20071010
  Serious: Yes (Hospitalization, Other)
  Sender: FDA-Public Use
  Company Number: US_0509122382

PATIENT
  Age: 45 Year
  Sex: Male
  Weight: 113.4 kg

DRUGS (11)
  1. ZYPREXA [Suspect]
     Indication: BIPOLAR DISORDER
     Dosage: 10 MG
     Dates: start: 20020521, end: 20021019
  2. CLONAZEPAM [Concomitant]
  3. LIPITOR [Concomitant]
  4. GLIPIZIDE [Concomitant]
  5. TRILEPTAL [Concomitant]
  6. SEROQUEL [Concomitant]
  7. MULTIVITAMINS (ASCORBIC ACID, ERGOCALCIFEROL, FOLIC ACID, NICOTINAMIDE [Concomitant]
  8. ESKALITH [Concomitant]
  9. TRAZODONE HCL [Concomitant]
  10. NIASPAN [Concomitant]
  11. SKELAXIN [Concomitant]

REACTIONS (5)
  - BLOOD TRIGLYCERIDES INCREASED [None]
  - CHEST PAIN [None]
  - DIABETES MELLITUS [None]
  - ERECTILE DYSFUNCTION [None]
  - METABOLIC DISORDER [None]
